FAERS Safety Report 7548618-1 (Version None)
Quarter: 2011Q2

REPORT INFORMATION
  Report Type: 
  Country: None (occurrence: None)
  Receive Date: 20110615
  Receipt Date: 20110610
  Transmission Date: 20111010
  Serious: Yes (Other)
  Sender: FDA-Public Use
  Company Number: US-SANOFI-AVENTIS-2011SA036136

PATIENT
  Sex: Male

DRUGS (3)
  1. MULTAQ [Suspect]
     Indication: ATRIAL FIBRILLATION
     Route: 065
  2. MULTAQ [Suspect]
     Route: 065
     Dates: start: 20110101
  3. ANAESTHETICS, GENERAL [Suspect]
     Route: 065

REACTIONS (3)
  - ISCHAEMIC HEPATITIS [None]
  - LIVER FUNCTION TEST ABNORMAL [None]
  - CARDIAC FAILURE [None]
